FAERS Safety Report 21322251 (Version 1)
Quarter: 2022Q3

REPORT INFORMATION
  Report Type: Spontaneous
  Country: DK (occurrence: None)
  Receive Date: 20220912
  Receipt Date: 20220912
  Transmission Date: 20221026
  Serious: Yes (Other)
  Sender: FDA-Public Use
  Company Number: DK-ROCHE-3176505

PATIENT
  Age: 60 Year
  Sex: Male

DRUGS (2)
  1. BACTRIM [Suspect]
     Active Substance: SULFAMETHOXAZOLE\TRIMETHOPRIM
     Indication: Infection prophylaxis
     Dosage: 1 DOSAGE FORM 1 TABLETS?EVERY MONDAYS,?WEDNESDAYS AND FRIDAYS
     Route: 048
     Dates: start: 20220504
  2. RITUXIMAB [Suspect]
     Active Substance: RITUXIMAB
     Indication: Demyelinating polyneuropathy
     Dosage: 375 MILLIGRAM PER SQUARE?METRE C1D1 ON 03/05 ?C1D2 ON 04/05 C2D1 ON?31/05 ; C2D2 ON 01/06 ; C3D1 ON
     Route: 041

REACTIONS (2)
  - Rash maculo-papular [Recovering/Resolving]
  - Eosinophilia [Not Recovered/Not Resolved]

NARRATIVE: CASE EVENT DATE: 20220601
